FAERS Safety Report 11151248 (Version 3)
Quarter: 2015Q3

REPORT INFORMATION
  Report Type: Report from Study
  Country: US (occurrence: US)
  Receive Date: 20150601
  Receipt Date: 20150814
  Transmission Date: 20151125
  Serious: Yes (Hospitalization)
  Sender: FDA-Public Use
  Company Number: US-BAYER-2015-276934

PATIENT
  Age: 51 Year
  Sex: Male

DRUGS (3)
  1. ADEMPAS [Suspect]
     Active Substance: RIOCIGUAT
     Indication: PULMONARY ARTERIAL HYPERTENSION
     Dosage: UNK
     Dates: start: 20150508
  2. ADEMPAS [Suspect]
     Active Substance: RIOCIGUAT
     Indication: PULMONARY ARTERIAL HYPERTENSION
     Dosage: 0.5 MG, TID
     Route: 048
  3. ADEMPAS [Suspect]
     Active Substance: RIOCIGUAT
     Indication: PULMONARY ARTERIAL HYPERTENSION
     Dosage: 0.5 MG, TID
     Route: 048
     Dates: start: 20150505

REACTIONS (10)
  - Oedema [Unknown]
  - Tachycardia [Unknown]
  - Hypotension [Unknown]
  - Pleural effusion [Unknown]
  - Defaecation urgency [Unknown]
  - Dizziness [Recovered/Resolved]
  - Vomiting [None]
  - Circulatory collapse [Unknown]
  - Vision blurred [Unknown]
  - Decreased appetite [None]

NARRATIVE: CASE EVENT DATE: 201505
